FAERS Safety Report 9012527 (Version 4)
Quarter: 2013Q4

REPORT INFORMATION
  Report Type: Spontaneous
  Country: US (occurrence: US)
  Receive Date: 20130114
  Receipt Date: 20131220
  Transmission Date: 20140711
  Serious: Yes (Hospitalization, Disabling, Other)
  Sender: FDA-Public Use
  Company Number: US-009507513-1301USA005202

PATIENT
  Sex: Female

DRUGS (1)
  1. NUVARING [Suspect]
     Indication: CONTRACEPTION
     Dosage: UNK
     Route: 067
     Dates: start: 201101, end: 201108

REACTIONS (10)
  - Abortion induced [Unknown]
  - Pulmonary embolism [Unknown]
  - Emotional disorder [Unknown]
  - Infection [Unknown]
  - Inappropriate schedule of drug administration [Unknown]
  - Cardiomegaly [Unknown]
  - Fall [Unknown]
  - Spinal column injury [Unknown]
  - Leukocytosis [Recovering/Resolving]
  - Maternal exposure before pregnancy [Unknown]
